FAERS Safety Report 13653402 (Version 1)
Quarter: 2017Q2

REPORT INFORMATION
  Report Type: Spontaneous
  Country: US (occurrence: US)
  Receive Date: 20170614
  Receipt Date: 20170614
  Transmission Date: 20170830
  Serious: No
  Sender: FDA-Public Use
  Company Number: US-ROCHE-1246252

PATIENT
  Sex: Female

DRUGS (1)
  1. XELODA [Suspect]
     Active Substance: CAPECITABINE
     Indication: PRODUCT USED FOR UNKNOWN INDICATION
     Dosage: 500 MG TABLETS. 2 TABLETS, TWICE DAILY, FOR ONE WEEK, FOLLOWED BY ONE WEEK OFF
     Route: 048

REACTIONS (2)
  - Dizziness [Unknown]
  - Diarrhoea [Unknown]
